FAERS Safety Report 7171161-9 (Version None)
Quarter: 2010Q4

REPORT INFORMATION
  Report Type: 
  Country: None (occurrence: None)
  Receive Date: 20101217
  Receipt Date: 20101213
  Transmission Date: 20110411
  Serious: Yes (Death, Other)
  Sender: FDA-Public Use
  Company Number: ZA-PFIZER INC-2010171000

PATIENT
  Age: 64 Year
  Sex: Male
  Weight: 72 kg

DRUGS (4)
  1. SUTENT [Suspect]
     Indication: GASTROINTESTINAL CANCER METASTATIC
     Dosage: 37.5 MG, 1X/DAY
     Route: 048
     Dates: start: 20090106, end: 20091127
  2. ACETAMINOPHEN [Concomitant]
     Dosage: UNK
     Route: 048
     Dates: start: 20091110
  3. TRAMADOL [Concomitant]
     Dosage: UNK
     Route: 048
     Dates: start: 20091110
  4. MORPHINE [Concomitant]
     Dosage: UNK
     Route: 048
     Dates: start: 20091110

REACTIONS (4)
  - DISEASE PROGRESSION [None]
  - GASTROINTESTINAL STROMAL TUMOUR [None]
  - HYPERBILIRUBINAEMIA [None]
  - LEFT VENTRICULAR DYSFUNCTION [None]
